FAERS Safety Report 4723782-8 (Version None)
Quarter: 2005Q3

REPORT INFORMATION
  Report Type: 
  Country: None (occurrence: None)
  Receive Date: 20050722
  Receipt Date: 20050715
  Transmission Date: 20060218
  Serious: Yes (Hospitalization)
  Sender: FDA-Public Use
  Company Number: GXKR2005CH01330

PATIENT
  Age: 79 Year
  Sex: Female

DRUGS (6)
  1. AMOXICILLIN+CLAVULANATE(NGX) (AMOXICILLIN, CLAVULANATE) TABLET, 625MG [Suspect]
     Indication: GASTRITIS
     Dosage: 625 MG, TID, ORAL
     Route: 048
     Dates: start: 20050528, end: 20050606
  2. CLARITHROMYCIN [Suspect]
     Indication: GASTRITIS
     Dosage: 500 MG/D
  3. ESOMEPRAZOLE (ESOMEPRAZOLE) [Concomitant]
  4. SIMVASTATIN [Concomitant]
  5. RALOXIFENE HCL [Concomitant]
  6. ACETYLSALICYLIC ACID SRT [Concomitant]

REACTIONS (7)
  - ASTHENIA [None]
  - BODY TEMPERATURE INCREASED [None]
  - CONFUSIONAL STATE [None]
  - GAIT DISTURBANCE [None]
  - MYALGIA [None]
  - PLEURAL EFFUSION [None]
  - SOMNOLENCE [None]
